FAERS Safety Report 4612752-6 (Version None)
Quarter: 2005Q1

REPORT INFORMATION
  Report Type: 
  Country: None (occurrence: None)
  Receive Date: 20050318
  Receipt Date: 20050228
  Transmission Date: 20050727
  Serious: Yes (Other)
  Sender: FDA-Public Use
  Company Number: US-MERCK-0502USA03569

PATIENT
  Age: 75 Year
  Sex: Female

DRUGS (2)
  1. ZOCOR [Suspect]
     Route: 048
  2. PRINIVIL [Concomitant]
     Route: 048

REACTIONS (3)
  - GALLBLADDER DISORDER [None]
  - LIVER DISORDER [None]
  - PANCREATIC DISORDER [None]
